FAERS Safety Report 12407795 (Version 1)
Quarter: 2016Q2

REPORT INFORMATION
  Report Type: Report from Study
  Country: ES (occurrence: ES)
  Receive Date: 20160526
  Receipt Date: 20160526
  Transmission Date: 20160815
  Serious: Yes (Death, Hospitalization)
  Sender: FDA-Public Use
  Company Number: ES-BAYER-2016-098942

PATIENT
  Age: 88 Year
  Sex: Female

DRUGS (1)
  1. ADIRO 100MG GASTRO-RESISTENT TABLETS, 30 TABLETS [Suspect]
     Active Substance: ASPIRIN
     Indication: PROPHYLAXIS
     Dosage: 100 MG, QD (0-1-0)
     Route: 048
     Dates: start: 2016, end: 20160325

REACTIONS (1)
  - Cerebral haemorrhage [Fatal]

NARRATIVE: CASE EVENT DATE: 20160325
